FAERS Safety Report 9066994 (Version 2)
Quarter: 2013Q1

REPORT INFORMATION
  Report Type: Report from Study
  Country: CA (occurrence: CA)
  Receive Date: 20130214
  Receipt Date: 20130301
  Transmission Date: 20140127
  Serious: Yes (Hospitalization)
  Sender: FDA-Public Use
  Company Number: CA-JNJFOC-20130202994

PATIENT
  Age: 37 None
  Sex: Female
  Weight: 64 kg

DRUGS (2)
  1. REMICADE [Suspect]
     Indication: COLITIS ULCERATIVE
     Route: 042
     Dates: start: 20121112
  2. REMICADE [Suspect]
     Indication: COLITIS ULCERATIVE
     Dosage: FOR 3 INFUSIONS
     Route: 042

REACTIONS (3)
  - Pouchitis [Unknown]
  - Dehydration [Unknown]
  - Drug ineffective [Unknown]
